FAERS Safety Report 5745218-0 (Version None)
Quarter: 2008Q2

REPORT INFORMATION
  Report Type: 
  Country: None (occurrence: None)
  Receive Date: 20080521
  Receipt Date: 20080516
  Transmission Date: 20081010
  Serious: Yes (Hospitalization)
  Sender: FDA-Public Use
  Company Number: A0728859A

PATIENT
  Age: 89 Year
  Sex: Female
  Weight: 90 kg

DRUGS (8)
  1. AMOXICILLIN + CLAVULANATE POTASSIUM [Suspect]
     Indication: URINARY TRACT INFECTION
     Dosage: 1G THREE TIMES PER DAY
     Dates: start: 20080430, end: 20080506
  2. DAONIL [Concomitant]
     Dosage: 10MG AS REQUIRED
  3. DIPIRONA [Concomitant]
  4. VITAMIN B [Concomitant]
     Dates: start: 20080503
  5. ASCORBIC ACID [Concomitant]
     Dates: start: 20080503
  6. SODIUM CHLORIDE [Concomitant]
     Dates: start: 20080503
  7. POTASSIUM CHLORIDE [Concomitant]
     Dates: start: 20080506
  8. OMEPRAZOLE [Concomitant]
     Route: 042
     Dates: start: 20080506

REACTIONS (1)
  - DRUG INEFFECTIVE [None]
